FAERS Safety Report 19496949 (Version 1)
Quarter: 2021Q3

REPORT INFORMATION
  Report Type: Spontaneous
  Country: US (occurrence: US)
  Receive Date: 20210705
  Receipt Date: 20210705
  Transmission Date: 20211014
  Serious: No
  Sender: FDA-Public Use
  Company Number: None

PATIENT
  Sex: Female

DRUGS (2)
  1. XULANE [Concomitant]
     Active Substance: ETHINYL ESTRADIOL\NORELGESTROMIN
  2. ZAFEMY [Suspect]
     Active Substance: ETHINYL ESTRADIOL\NORELGESTROMIN
     Indication: CONTRACEPTION
     Dosage: ?          OTHER STRENGTH:MCG;?
     Route: 062
     Dates: start: 20210416

REACTIONS (2)
  - Anxiety [None]
  - Product adhesion issue [None]

NARRATIVE: CASE EVENT DATE: 20210705
